FAERS Safety Report 6511971-1 (Version None)
Quarter: 2009Q4

REPORT INFORMATION
  Report Type: 
  Country: None (occurrence: None)
  Receive Date: 20091222
  Receipt Date: 20090803
  Transmission Date: 20100525
  Serious: No
  Sender: FDA-Public Use
  Company Number: US-ASTRAZENECA-2009UW16223

PATIENT
  Age: 80 Year
  Sex: Female
  Weight: 70.3 kg

DRUGS (4)
  1. CRESTOR [Suspect]
     Indication: BLOOD CHOLESTEROL INCREASED
     Route: 048
     Dates: start: 20090614
  2. VERAPAMIL [Concomitant]
  3. ALENDRONATE SODIUM [Concomitant]
  4. BENICAR [Concomitant]

REACTIONS (4)
  - DIZZINESS [None]
  - FATIGUE [None]
  - HEAD DISCOMFORT [None]
  - MUSCULOSKELETAL PAIN [None]
